FAERS Safety Report 8889917 (Version 2)
Quarter: 2012Q4

REPORT INFORMATION
  Report Type: 
  Country: US (occurrence: US)
  Receive Date: 20121107
  Receipt Date: 20121115
  Transmission Date: 20130627
  Serious: No
  Sender: FDA-Public Use
  Company Number: US-PFIZER INC-2012277558

PATIENT
  Age: 64 Year
  Sex: Female
  Weight: 86.17 kg

DRUGS (2)
  1. ADVIL [Suspect]
     Indication: PAIN IN KNEE
     Dosage: 200 mg, every 4 hrs
     Route: 048
     Dates: start: 20121101
  2. CALCIUM PLUS VITAMIN D [Concomitant]
     Indication: BONE DISORDER
     Dosage: 400/200 mg, 2x/day

REACTIONS (1)
  - Drug ineffective [Unknown]
